FAERS Safety Report 8991160 (Version 1)
Quarter: 2012Q4

REPORT INFORMATION
  Report Type: 
  Country: US (occurrence: US)
  Receive Date: 20121231
  Receipt Date: 20121231
  Transmission Date: 20130627
  Serious: Yes (Hospitalization)
  Sender: FDA-Public Use
  Company Number: US-BAYER-2012-136280

PATIENT
  Age: 51 Year
  Sex: Female
  Weight: 86.17 kg

DRUGS (10)
  1. YASMIN [Suspect]
  2. YAZ [Suspect]
  3. OCELLA [Suspect]
  4. Z-PAK [Concomitant]
  5. ALBUTEROL [Concomitant]
  6. BUPROPION [Concomitant]
  7. MULTIVITAMIN [Concomitant]
  8. LUPRON [Concomitant]
  9. OMEPRAZOLE [Concomitant]
  10. NEXIUM [Concomitant]

REACTIONS (1)
  - Pulmonary embolism [None]
